FAERS Safety Report 6587706-3 (Version None)
Quarter: 2010Q1

REPORT INFORMATION
  Report Type: 
  Country: None (occurrence: None)
  Receive Date: 20100218
  Receipt Date: 20091026
  Transmission Date: 20100710
  Serious: No
  Sender: FDA-Public Use
  Company Number: A0813405A

PATIENT
  Sex: Female

DRUGS (3)
  1. COREG CR [Suspect]
     Route: 048
     Dates: start: 20080101
  2. FISH OIL [Concomitant]
  3. LOVAZA [Concomitant]

REACTIONS (1)
  - HYPERTENSION [None]
